FAERS Safety Report 8261287-0 (Version None)
Quarter: 2012Q2

REPORT INFORMATION
  Report Type: 
  Country: None (occurrence: None)
  Receive Date: 20120405
  Receipt Date: 20120329
  Transmission Date: 20120825
  Serious: Yes (Other)
  Sender: FDA-Public Use
  Company Number: US-BAYER-201038392NA

PATIENT
  Age: 48 Year
  Sex: Female

DRUGS (7)
  1. COUMADIN [Concomitant]
     Dosage: UNK
     Dates: start: 20030617
  2. PAXIL [Concomitant]
     Dosage: 12.5 MG, UNK
     Dates: start: 20030617
  3. ESTROGEN NOS [Concomitant]
  4. YASMIN [Suspect]
     Dosage: UNK UNK, QD
     Route: 048
     Dates: start: 20020101, end: 20030601
  5. YAZ [Suspect]
     Dosage: UNK UNK, QD
     Route: 048
     Dates: start: 20020101, end: 20030601
  6. DROSPIRENONE AND ETHINYL ESTRADIOL [Suspect]
     Dosage: UNK UNK, QD
     Route: 048
     Dates: start: 20020101, end: 20030601
  7. ZOCOR [Concomitant]
     Dosage: UNK
     Dates: start: 20030617

REACTIONS (7)
  - INJURY [None]
  - DEEP VEIN THROMBOSIS [None]
  - ANXIETY [None]
  - EMOTIONAL DISTRESS [None]
  - PAIN [None]
  - PULMONARY EMBOLISM [None]
  - GENERAL PHYSICAL HEALTH DETERIORATION [None]
